FAERS Safety Report 19200220 (Version 1)
Quarter: 2021Q2

REPORT INFORMATION
  Report Type: Spontaneous
  Country: IN (occurrence: IN)
  Receive Date: 20210430
  Receipt Date: 20210430
  Transmission Date: 20210717
  Serious: Yes (Other)
  Sender: FDA-Public Use
  Company Number: NVSC2021IN089652

PATIENT
  Age: 30 Year
  Sex: Male

DRUGS (1)
  1. DESFERAL [Suspect]
     Active Substance: DEFEROXAMINE MESYLATE
     Indication: AMYOTROPHIC LATERAL SCLEROSIS
     Dosage: 5 MG/KG, QW (8 DOSES)
     Route: 042

REACTIONS (1)
  - Disease progression [Unknown]
